FAERS Safety Report 20696090 (Version 2)
Quarter: 2022Q2

REPORT INFORMATION
  Report Type: Spontaneous
  Country: US (occurrence: US)
  Receive Date: 20220411
  Receipt Date: 20220422
  Transmission Date: 20220720
  Serious: Yes (Other)
  Sender: FDA-Public Use
  Company Number: US-BRISTOL-MYERS SQUIBB COMPANY-2022-015904

PATIENT
  Age: 92 Year
  Weight: 65.77 kg

DRUGS (2)
  1. ELIQUIS [Suspect]
     Active Substance: APIXABAN
     Indication: Product used for unknown indication
     Dosage: DOSE : (2) TABLETS;     FREQ : TWICE DAILY
     Route: 065
     Dates: start: 20220322, end: 20220328
  2. ELIQUIS [Suspect]
     Active Substance: APIXABAN
     Indication: Deep vein thrombosis

REACTIONS (3)
  - Haematochezia [Unknown]
  - Blood urine present [Unknown]
  - Infection [Unknown]

NARRATIVE: CASE EVENT DATE: 20220328
